FAERS Safety Report 24925517 (Version 1)
Quarter: 2025Q1

REPORT INFORMATION
  Report Type: Report from Study
  Country: US (occurrence: US)
  Receive Date: 20250204
  Receipt Date: 20250204
  Transmission Date: 20250409
  Serious: No
  Sender: EXELIXIS
  Company Number: US-EXELIXIS-CABO-24076299

PATIENT
  Sex: Male
  Weight: 70.286 kg

DRUGS (3)
  1. CABOMETYX [Suspect]
     Active Substance: CABOZANTINIB S-MALATE
     Indication: Renal cancer
     Route: 048
  2. CABOMETYX [Suspect]
     Active Substance: CABOZANTINIB S-MALATE
     Route: 048
  3. CABOMETYX [Suspect]
     Active Substance: CABOZANTINIB S-MALATE
     Dosage: 20 MG, QD
     Route: 048
     Dates: start: 20240314

REACTIONS (6)
  - Blood pressure increased [Recovering/Resolving]
  - Fungal foot infection [Recovering/Resolving]
  - Bacterial infection [Recovering/Resolving]
  - Gait disturbance [Recovering/Resolving]
  - Balance disorder [Unknown]
  - Wrong technique in product usage process [Unknown]
